FAERS Safety Report 9821814 (Version 1)
Quarter: 2014Q1

REPORT INFORMATION
  Report Type: Spontaneous
  Country: GB (occurrence: GB)
  Receive Date: 20140116
  Receipt Date: 20140116
  Transmission Date: 20141002
  Serious: Yes (Other)
  Sender: FDA-Public Use
  Company Number: GB-BAYER-2014-006407

PATIENT
  Age: 77 Year
  Sex: Male

DRUGS (6)
  1. NIMODIPINE [Suspect]
     Indication: HAEMORRHAGE INTRACRANIAL
     Dosage: 60 MG, Q4HR
     Route: 048
     Dates: end: 201312
  2. BISOPROLOL [Concomitant]
     Dosage: 10 MG, UNK
  3. LISINOPRIL [Concomitant]
     Dosage: 40 MG, UNK
  4. METFORMIN [Concomitant]
     Dosage: 1 G, BID
  5. PARACETAMOL [Concomitant]
     Dosage: 1 G, QID
  6. PHENYTOIN [Concomitant]
     Dosage: 100 MG, TID

REACTIONS (2)
  - Suicidal ideation [Recovered/Resolved]
  - Depression [Recovered/Resolved]
